FAERS Safety Report 25751087 (Version 1)
Quarter: 2025Q3

REPORT INFORMATION
  Report Type: Spontaneous
  Country: US (occurrence: None)
  Receive Date: 20250830
  Receipt Date: 20250830
  Transmission Date: 20251020
  Serious: Yes (Hospitalization)
  Sender: FDA-CTU
  Company Number: None

PATIENT
  Age: 65 Year
  Sex: Male

DRUGS (1)
  1. VYNDAMAX [Suspect]
     Active Substance: TAFAMIDIS
     Indication: Chronic left ventricular failure
     Dosage: 61MG QD ORAL
     Route: 048

REACTIONS (4)
  - Aortic aneurysm repair [None]
  - Product storage error [None]
  - Manufacturing product shipping issue [None]
  - Product physical issue [None]
